FAERS Safety Report 16833576 (Version 1)
Quarter: 2019Q4

REPORT INFORMATION
  Report Type: Spontaneous
  Country: US (occurrence: US)
  Receive Date: 20190920
  Receipt Date: 20190920
  Transmission Date: 20200122
  Serious: Yes (Hospitalization)
  Sender: FDA-Public Use
  Company Number: None

PATIENT
  Age: 42 Year
  Sex: Female

DRUGS (10)
  1. RIZATRIPTAN TAB 10 MG ODT [Concomitant]
  2. TROKENENDI XR CAP 50 MG [Concomitant]
  3. OMEPRAZOLE CAP 40 MG [Concomitant]
  4. HUMIRA [Suspect]
     Active Substance: ADALIMUMAB
     Indication: RHEUMATOID ARTHRITIS
     Dosage: ?          OTHER FREQUENCY:EVERY 2 WEEKS;?
     Route: 058
     Dates: start: 20190227
  5. IBUPROFEN TAB 800 MG [Concomitant]
  6. AZITHROMYCIN TAB 250 MG [Concomitant]
  7. EMGALITY INJ 120 MG / ML [Concomitant]
  8. PREDNISONE TAB 20 MG [Concomitant]
  9. BENZONANTE CAP 100 MG [Concomitant]
  10. LEVOFLOXACIN TAB 500 MG [Concomitant]

REACTIONS (1)
  - Pneumonia [None]

NARRATIVE: CASE EVENT DATE: 20190915
